FAERS Safety Report 16807858 (Version 1)
Quarter: 2019Q3

REPORT INFORMATION
  Report Type: Report from Study
  Country: CO (occurrence: CO)
  Receive Date: 20190915
  Receipt Date: 20190915
  Transmission Date: 20191005
  Serious: Yes (Death, Other)
  Sender: FDA-Public Use
  Company Number: PHHY2019CO178690

PATIENT
  Age: 52 Year
  Sex: Male

DRUGS (2)
  1. REVOLADE [Suspect]
     Active Substance: ELTROMBOPAG
     Dosage: 150 MG, QD
     Route: 048
     Dates: start: 20190717
  2. REVOLADE [Suspect]
     Active Substance: ELTROMBOPAG
     Indication: APLASTIC ANAEMIA
     Dosage: 150 MG, QD
     Route: 048

REACTIONS (7)
  - Lung infection [Unknown]
  - Liver injury [Unknown]
  - Death [Fatal]
  - Pleural effusion [Unknown]
  - White blood cell disorder [Unknown]
  - Drug ineffective [Unknown]
  - Ocular icterus [Unknown]

NARRATIVE: CASE EVENT DATE: 201907
